FAERS Safety Report 9256108 (Version 1)
Quarter: 2013Q2

REPORT INFORMATION
  Report Type: Spontaneous
  Country: US (occurrence: US)
  Receive Date: 20130425
  Receipt Date: 20130425
  Transmission Date: 20140414
  Serious: No
  Sender: FDA-Public Use
  Company Number: US-AMGEN-USASP2011037752

PATIENT
  Age: 28 Year
  Sex: Female
  Weight: 58.96 kg

DRUGS (8)
  1. NEULASTA [Suspect]
     Indication: BREAST CANCER
     Dosage: 6 MG, Q2WK
     Dates: start: 20110720
  2. CYCLOPHOSPHAMIDE [Concomitant]
  3. DOXORUBICIN [Concomitant]
  4. APREPITANT [Concomitant]
  5. ZOFRAN                             /00955301/ [Concomitant]
  6. COMPAZINE                          /00013302/ [Concomitant]
  7. COLACE [Concomitant]
  8. DECADRON                           /00016001/ [Concomitant]

REACTIONS (2)
  - Oropharyngeal pain [Not Recovered/Not Resolved]
  - Nausea [Not Recovered/Not Resolved]
